FAERS Safety Report 25951663 (Version 1)
Quarter: 2025Q4

REPORT INFORMATION
  Report Type: Spontaneous
  Country: US (occurrence: US)
  Receive Date: 20251023
  Receipt Date: 20251023
  Transmission Date: 20260117
  Serious: No
  Sender: ABBVIE
  Company Number: US-ABBVIE-6514310

PATIENT
  Sex: Female

DRUGS (1)
  1. EMRELIS [Suspect]
     Active Substance: TELISOTUZUMAB VEDOTIN-TLLV
     Indication: Non-small cell lung cancer
     Route: 042
     Dates: start: 202509

REACTIONS (2)
  - Vision blurred [Recovering/Resolving]
  - Keratitis [Recovering/Resolving]

NARRATIVE: CASE EVENT DATE: 20251001
